FAERS Safety Report 6449051-6 (Version None)
Quarter: 2009Q4

REPORT INFORMATION
  Report Type: 
  Country: None (occurrence: None)
  Receive Date: 20091120
  Receipt Date: 20091113
  Transmission Date: 20100525
  Serious: Yes (Hospitalization, Other)
  Sender: FDA-Public Use
  Company Number: US-ABBOTT-09P-163-0608497-00

PATIENT
  Sex: Female
  Weight: 63.56 kg

DRUGS (6)
  1. HUMIRA [Suspect]
     Indication: CROHN'S DISEASE
     Route: 058
     Dates: start: 20080601, end: 20080601
  2. HUMIRA [Suspect]
     Route: 058
     Dates: start: 20080601
  3. HUMIRA [Suspect]
     Route: 058
     Dates: end: 20081113
  4. HUMIRA [Suspect]
     Dosage: HUMIRA PEN
     Route: 058
     Dates: start: 20091114
  5. PENTASA [Concomitant]
     Indication: CROHN'S DISEASE
     Dosage: UNKNOWN
     Dates: start: 20091001
  6. PENTASA [Concomitant]
     Dosage: UNKNOWN
     Dates: end: 20080601

REACTIONS (4)
  - ABDOMINAL PAIN [None]
  - ABSCESS [None]
  - CROHN'S DISEASE [None]
  - INTESTINAL PERFORATION [None]
